FAERS Safety Report 9985194 (Version 2)
Quarter: 2015Q1

REPORT INFORMATION
  Report Type: Spontaneous
  Country: PR (occurrence: PR)
  Receive Date: 20140307
  Receipt Date: 20150219
  Transmission Date: 20150721
  Serious: No
  Sender: FDA-Public Use
  Company Number: PR-ABBVIE-14P-131-1186365-00

PATIENT
  Age: 52 Year
  Sex: Female
  Weight: 72.19 kg

DRUGS (4)
  1. UNKNOWN MEDICATION [Concomitant]
     Active Substance: UNSPECIFIED INGREDIENT
     Indication: ANXIOLYTIC THERAPY
     Dosage: 1 AT NIGHT TIME
     Route: 048
  2. ZOLOFT [Concomitant]
     Active Substance: SERTRALINE HYDROCHLORIDE
     Indication: ANXIETY
     Route: 048
  3. AMBIEN [Concomitant]
     Active Substance: ZOLPIDEM TARTRATE
     Indication: ANXIOLYTIC THERAPY
     Dosage: 1 AT NIGHT
     Route: 048
  4. HUMIRA [Suspect]
     Active Substance: ADALIMUMAB
     Indication: PRODUCT USED FOR UNKNOWN INDICATION
     Route: 058
     Dates: start: 20131216

REACTIONS (13)
  - Injection site oedema [Not Recovered/Not Resolved]
  - Injection site erythema [Unknown]
  - Injection site pruritus [Recovered/Resolved]
  - Injection site swelling [Unknown]
  - Urticaria [Unknown]
  - Arthralgia [Unknown]
  - Dizziness [Recovered/Resolved]
  - Injection site urticaria [Recovered/Resolved]
  - Visual impairment [Recovered/Resolved]
  - Injection site pruritus [Unknown]
  - Injection site induration [Unknown]
  - Injection site erythema [Not Recovered/Not Resolved]
  - Injection site pruritus [Not Recovered/Not Resolved]

NARRATIVE: CASE EVENT DATE: 20140117
